FAERS Safety Report 8336362-2 (Version None)
Quarter: 2012Q2

REPORT INFORMATION
  Report Type: 
  Country: None (occurrence: None)
  Receive Date: 20120504
  Receipt Date: 20120419
  Transmission Date: 20120825
  Serious: Yes (Other)
  Sender: FDA-Public Use
  Company Number: US-ENDO PHARMACEUTICALS INC.-OPIR20120050

PATIENT
  Sex: Male

DRUGS (2)
  1. OPANA [Suspect]
     Indication: PAIN
     Route: 048
  2. OPANA ER [Suspect]
     Indication: PAIN
     Route: 048

REACTIONS (4)
  - DRUG INEFFECTIVE [None]
  - SUICIDE ATTEMPT [None]
  - PAIN [None]
  - HAEMORRHAGE [None]
